FAERS Safety Report 6196968-6 (Version None)
Quarter: 2009Q2

REPORT INFORMATION
  Report Type: 
  Country: None (occurrence: None)
  Receive Date: 20090520
  Receipt Date: 20090511
  Transmission Date: 20091009
  Serious: Yes (Hospitalization)
  Sender: FDA-Public Use
  Company Number: PHHO2005US06056

PATIENT
  Sex: Male
  Weight: 80.4 kg

DRUGS (5)
  1. CIBADREX T29368+ [Suspect]
     Indication: HYPERTENSION
     Dosage: UNK, LEVEL 1
     Route: 048
     Dates: start: 20050401
  2. LEVAQUIN [Concomitant]
  3. LASIX [Concomitant]
  4. LANTUS [Concomitant]
     Dosage: 28 UNK, QD
  5. HUMALOG [Concomitant]
     Dosage: SLIDING SCALE BEFORE EACH MEAL

REACTIONS (13)
  - BACK PAIN [None]
  - BLOOD CREATININE INCREASED [None]
  - DISEASE PROGRESSION [None]
  - FLANK PAIN [None]
  - HAEMATURIA [None]
  - HYPERKALAEMIA [None]
  - LUNG INFILTRATION [None]
  - PNEUMONIA [None]
  - PRODUCTIVE COUGH [None]
  - RALES [None]
  - RENAL FAILURE [None]
  - SINUS BRADYCARDIA [None]
  - WHITE BLOOD CELL COUNT INCREASED [None]
